FAERS Safety Report 4984194-5 (Version None)
Quarter: 2006Q2

REPORT INFORMATION
  Report Type: 
  Country: None (occurrence: None)
  Receive Date: 20060427
  Receipt Date: 20060424
  Transmission Date: 20061013
  Serious: Yes (Other)
  Sender: FDA-Public Use
  Company Number: US-JNJFOC-20060405397

PATIENT
  Age: 60 Year
  Sex: Male

DRUGS (2)
  1. FLEXERIL [Suspect]
     Route: 048
  2. FLEXERIL [Suspect]
     Dosage: 10- 20 MG DAILY, ORAL
     Route: 048

REACTIONS (2)
  - HYPERTENSION [None]
  - TACHYCARDIA [None]
